FAERS Safety Report 12980596 (Version 1)
Quarter: 2016Q4

REPORT INFORMATION
  Report Type: Report from Study
  Country: FR (occurrence: FR)
  Receive Date: 20161128
  Receipt Date: 20161128
  Transmission Date: 20170207
  Serious: Yes (Other)
  Sender: FDA-Public Use
  Company Number: FR-VIIV HEALTHCARE LIMITED-FR2016GSK175665

PATIENT
  Age: 64 Year
  Sex: Male

DRUGS (1)
  1. ABACAVIR SULPHATE+LAMIVUDINE+ZIDOVUDINE [Suspect]
     Active Substance: ABACAVIR SULFATE\LAMIVUDINE\ZIDOVUDINE
     Indication: HIV INFECTION

REACTIONS (1)
  - Lipodystrophy acquired [Unknown]
